FAERS Safety Report 5795448-7 (Version None)
Quarter: 2008Q2

REPORT INFORMATION
  Report Type: 
  Country: None (occurrence: None)
  Receive Date: 20080630
  Receipt Date: 20080618
  Transmission Date: 20081010
  Serious: Yes (Hospitalization, Other)
  Sender: FDA-Public Use
  Company Number: AR-PFIZER INC-2008038499

PATIENT
  Age: 73 Year
  Sex: Female

DRUGS (4)
  1. CHANTIX [Suspect]
     Indication: SMOKING CESSATION THERAPY
     Route: 048
     Dates: start: 20080101, end: 20080507
  2. TILAZEM [Concomitant]
     Route: 048
  3. ALPLAX [Concomitant]
     Route: 048
  4. CALCIUM [Concomitant]
     Route: 048

REACTIONS (4)
  - ARTERIAL OCCLUSIVE DISEASE [None]
  - FALL [None]
  - HIP FRACTURE [None]
  - RASH [None]
